FAERS Safety Report 8428217-X (Version None)
Quarter: 2012Q2

REPORT INFORMATION
  Report Type: 
  Country: None (occurrence: None)
  Receive Date: 20120611
  Receipt Date: 20120606
  Transmission Date: 20120825
  Serious: Yes (Hospitalization)
  Sender: FDA-Public Use
  Company Number: PHHY2012TR048485

PATIENT
  Age: 18 Year
  Sex: Male

DRUGS (1)
  1. CLINDAMYCIN [Suspect]
     Indication: ACUTE TONSILLITIS
     Dosage: 1 DF, ONCE/SINGLE

REACTIONS (5)
  - CHEST PAIN [None]
  - LEUKOCYTOSIS [None]
  - EOSINOPHILIA [None]
  - KOUNIS SYNDROME [None]
  - ACUTE MYOCARDIAL INFARCTION [None]
